FAERS Safety Report 17591571 (Version 3)
Quarter: 2020Q2

REPORT INFORMATION
  Report Type: Report from Study
  Country: CO (occurrence: CO)
  Receive Date: 20200327
  Receipt Date: 20200610
  Transmission Date: 20200713
  Serious: Yes (Other)
  Sender: FDA-Public Use
  Company Number: CO-JNJFOC-20200239764

PATIENT
  Age: 83 Year
  Sex: Male
  Weight: 58 kg

DRUGS (1)
  1. STELARA [Suspect]
     Active Substance: USTEKINUMAB
     Indication: PSORIASIS
     Dosage: THE LATEST USTEKINUMAB ADMINISTRATION WAS ON OCT/11/2019
     Route: 058
     Dates: start: 20120612, end: 20191011

REACTIONS (2)
  - Product dose omission [Unknown]
  - Leukopenia [Not Recovered/Not Resolved]

NARRATIVE: CASE EVENT DATE: 201910
